FAERS Safety Report 15080399 (Version 1)
Quarter: 2018Q2

REPORT INFORMATION
  Report Type: Report from Study
  Country: FR (occurrence: FR)
  Receive Date: 20180628
  Receipt Date: 20180628
  Transmission Date: 20180711
  Serious: Yes (Other)
  Sender: FDA-Public Use
  Company Number: FR-ROCHE-2142962

PATIENT
  Age: 39 Year
  Sex: Female

DRUGS (2)
  1. VEMURAFENIB. [Suspect]
     Active Substance: VEMURAFENIB
     Indication: METASTATIC MALIGNANT MELANOMA
     Dosage: CYCLE 2?LAST DOSE ADMINISTERED BEFORE SAE 1920 MG?CUMULATIVE DOSE ADMINISTERED 49920 MG
     Route: 048
     Dates: start: 20171125, end: 20171220
  2. COBIMETINIB. [Suspect]
     Active Substance: COBIMETINIB
     Indication: METASTATIC MALIGNANT MELANOMA
     Dosage: CYCLE 2?LAST DOSE ADMINISTERED BEFORE SAE 60 MG?CUMULATIVE DOSE ADMINISTERED 1260 MG
     Route: 048
     Dates: start: 20171125, end: 20171215

REACTIONS (1)
  - Ejection fraction decreased [Unknown]

NARRATIVE: CASE EVENT DATE: 20171221
